FAERS Safety Report 10476531 (Version 1)
Quarter: 2014Q3

REPORT INFORMATION
  Report Type: Spontaneous
  Country: UG (occurrence: UG)
  Receive Date: 20140925
  Receipt Date: 20140925
  Transmission Date: 20150326
  Serious: Yes (Death, Hospitalization)
  Sender: FDA-Public Use
  Company Number: UG-VIIV HEALTHCARE LIMITED-B1036950A

PATIENT
  Age: 45 Year
  Sex: Male

DRUGS (7)
  1. FLUCONAZOLE. [Concomitant]
     Active Substance: FLUCONAZOLE
     Indication: MENINGITIS CRYPTOCOCCAL
     Dosage: 1200MG PER DAY
     Route: 065
  2. ZIDOVUDINE. [Suspect]
     Active Substance: ZIDOVUDINE
     Indication: HIV INFECTION
     Route: 065
  3. COTRIMOXAZOLE [Concomitant]
     Active Substance: SULFAMETHOXAZOLE\TRIMETHOPRIM
     Indication: PRODUCT USED FOR UNKNOWN INDICATION
     Route: 065
  4. SERTRALINE [Concomitant]
     Active Substance: SERTRALINE HYDROCHLORIDE
     Indication: MENINGITIS CRYPTOCOCCAL
     Dosage: 100MG PER DAY
     Route: 065
  5. LAMIVUDINE-HIV [Suspect]
     Active Substance: LAMIVUDINE
     Indication: HIV INFECTION
     Route: 065
  6. EFAVIRENZ [Suspect]
     Active Substance: EFAVIRENZ
     Indication: HIV INFECTION
     Route: 065
  7. AMPHOTERICIN B. [Concomitant]
     Active Substance: AMPHOTERICIN B
     Indication: MENINGITIS CRYPTOCOCCAL
     Dosage: 50MG PER DAY
     Route: 065

REACTIONS (12)
  - Anaemia [Unknown]
  - Immune reconstitution inflammatory syndrome [Fatal]
  - Renal failure [Unknown]
  - Lymphadenopathy [Unknown]
  - Generalised tonic-clonic seizure [Unknown]
  - Decreased appetite [Unknown]
  - Asthenia [Unknown]
  - Pneumonia aspiration [Unknown]
  - Cryptococcosis [Fatal]
  - Dehydration [Unknown]
  - Hemiparesis [Unknown]
  - Lethargy [Unknown]
